FAERS Safety Report 5430396-3 (Version None)
Quarter: 2007Q3

REPORT INFORMATION
  Report Type: 
  Country: None (occurrence: None)
  Receive Date: 20070828
  Receipt Date: 20070816
  Transmission Date: 20080115
  Serious: Yes (Hospitalization)
  Sender: FDA-Public Use
  Company Number: 2007BI006851

PATIENT
  Age: 56 Year
  Sex: Female

DRUGS (14)
  1. NATALIZUMAB [Suspect]
     Indication: MULTIPLE SCLEROSIS
     Dosage: 300 MG;QM;IV
     Route: 042
     Dates: start: 20070201
  2. AVONEX [Concomitant]
  3. KLONOPIN [Concomitant]
  4. NEURONTIN [Concomitant]
  5. ZYPREXA [Concomitant]
  6. ZOLOFT [Concomitant]
  7. TOPAMAX [Concomitant]
  8. EFFEXOR [Concomitant]
  9. BACLOFEN [Concomitant]
  10. TYLENOL (CAPLET) [Concomitant]
  11. PERCOCET [Concomitant]
  12. NEXIUM [Concomitant]
  13. OXYCONTIN [Concomitant]
  14. PROVIGIL [Concomitant]

REACTIONS (8)
  - DEEP VEIN THROMBOSIS [None]
  - DELIRIUM [None]
  - DIARRHOEA [None]
  - FALL [None]
  - NAUSEA [None]
  - OVERDOSE [None]
  - URINARY TRACT INFECTION [None]
  - VOMITING [None]
